FAERS Safety Report 11380954 (Version 1)
Quarter: 2015Q3

REPORT INFORMATION
  Report Type: Spontaneous
  Country: US (occurrence: None)
  Receive Date: 20150813
  Receipt Date: 20150813
  Transmission Date: 20151125
  Serious: Yes (Hospitalization)
  Sender: FDA-Public Use
  Company Number: None

PATIENT
  Age: 65 Year
  Sex: Male
  Weight: 78.9 kg

DRUGS (1)
  1. HYDROXYUREA. [Suspect]
     Active Substance: HYDROXYUREA
     Indication: MYELOPROLIFERATIVE DISORDER
     Route: 048
     Dates: start: 20140226, end: 20150713

REACTIONS (12)
  - Angioedema [None]
  - Anaemia [None]
  - Enterococcal infection [None]
  - Drug screen positive [None]
  - Leukopenia [None]
  - Pancytopenia [None]
  - Drug withdrawal syndrome [None]
  - Lip swelling [None]
  - Swelling face [None]
  - Febrile neutropenia [None]
  - Bacteraemia [None]
  - Thrombocytopenia [None]

NARRATIVE: CASE EVENT DATE: 20150713
